FAERS Safety Report 7233142-6 (Version None)
Quarter: 2011Q1

REPORT INFORMATION
  Report Type: 
  Country: None (occurrence: None)
  Receive Date: 20110119
  Receipt Date: 20110112
  Transmission Date: 20110831
  Serious: Yes (Other)
  Sender: FDA-Public Use
  Company Number: JP-PFIZER INC-2010179092

PATIENT
  Age: 71 Year
  Sex: Male

DRUGS (10)
  1. LYRICA [Suspect]
     Indication: NEURALGIA
     Dosage: 25 MG, 2X/DAY
     Route: 048
     Dates: start: 20101220
  2. OLMETEC [Concomitant]
  3. ASPIRIN [Concomitant]
  4. KINEDAK [Concomitant]
  5. LYRICA [Suspect]
     Indication: NEUROPATHY PERIPHERAL
     Dosage: 25 MG, 1X/DAY
     Route: 048
     Dates: start: 20101115, end: 20101219
  6. METHYCOBAL [Concomitant]
     Dosage: UNK
     Route: 048
  7. LANSOPRAZOLE [Concomitant]
     Dosage: UNK
     Route: 048
  8. ALLOPURINOL [Concomitant]
     Dosage: UNK
     Route: 048
  9. NORVASC [Concomitant]
  10. MEXITIL [Concomitant]

REACTIONS (1)
  - PLATELET COUNT DECREASED [None]
